FAERS Safety Report 18695404 (Version 1)
Quarter: 2021Q1

REPORT INFORMATION
  Report Type: Spontaneous
  Country: US (occurrence: US)
  Receive Date: 20210103
  Receipt Date: 20210103
  Transmission Date: 20210419
  Serious: No
  Sender: FDA-Public Use
  Company Number: None

PATIENT
  Age: 29 Year
  Sex: Female
  Weight: 130.5 kg

DRUGS (5)
  1. EMGALITY [Suspect]
     Active Substance: GALCANEZUMAB-GNLM
     Indication: MIGRAINE PROPHYLAXIS
     Dosage: QUANTITY:1 INJECTION(S);OTHER FREQUENCY:MONTHLY;OTHER ROUTE:SUBCUTANEOUS INJECTION?
     Dates: start: 20200930, end: 20210102
  2. NARATRIPTAN [Concomitant]
     Active Substance: NARATRIPTAN HYDROCHLORIDE
  3. SYMBICORT [Concomitant]
     Active Substance: BUDESONIDE\FORMOTEROL FUMARATE DIHYDRATE
  4. FAMOTIDINE. [Concomitant]
     Active Substance: FAMOTIDINE
  5. ALBUTERAL INHALER [Concomitant]

REACTIONS (7)
  - Injection site hypersensitivity [None]
  - Injection site pruritus [None]
  - Therapy cessation [None]
  - Injection site reaction [None]
  - Injection site pain [None]
  - Injection site erythema [None]
  - Injection site oedema [None]

NARRATIVE: CASE EVENT DATE: 20210102
